FAERS Safety Report 6048983-0 (Version None)
Quarter: 2009Q1

REPORT INFORMATION
  Report Type: 
  Country: None (occurrence: None)
  Receive Date: 20090123
  Receipt Date: 20081222
  Transmission Date: 20090719
  Serious: Yes (Death)
  Sender: FDA-Public Use
  Company Number: B0256525A

PATIENT
  Age: 58 Year
  Sex: Male

DRUGS (3)
  1. ARTIST [Suspect]
  2. CILAZAPRIL [Concomitant]
     Route: 048
  3. RITUXIMAB [Concomitant]
     Indication: NON-HODGKIN'S LYMPHOMA
     Route: 042

REACTIONS (1)
  - BLOOD PRESSURE DECREASED [None]
